FAERS Safety Report 6637748-4 (Version None)
Quarter: 2010Q1

REPORT INFORMATION
  Report Type: 
  Country: None (occurrence: None)
  Receive Date: 20100317
  Receipt Date: 20100310
  Transmission Date: 20100710
  Serious: Yes (Other)
  Sender: FDA-Public Use
  Company Number: US-BRISTOL-MYERS SQUIBB COMPANY-15011380

PATIENT
  Age: 19 Year
  Sex: Female

DRUGS (6)
  1. COUMADIN [Suspect]
     Indication: THROMBOSIS
  2. LOVENOX [Suspect]
     Indication: THROMBOSIS
     Dates: start: 20100124
  3. PHENYTOIN [Concomitant]
  4. KEPPRA [Concomitant]
  5. KEFLEX [Concomitant]
     Indication: INFECTION
  6. HEPARIN [Concomitant]
     Dates: end: 20100101

REACTIONS (2)
  - INTERNATIONAL NORMALISED RATIO INCREASED [None]
  - THROMBOSIS [None]
